FAERS Safety Report 20933322 (Version 1)
Quarter: 2022Q2

REPORT INFORMATION
  Report Type: Spontaneous
  Country: US (occurrence: US)
  Receive Date: 20220608
  Receipt Date: 20220608
  Transmission Date: 20220720
  Serious: No
  Sender: FDA-Public Use
  Company Number: US-RIGEL PHARMACEUTICALS, INC.-2021FOS000752

PATIENT
  Sex: Female

DRUGS (1)
  1. TAVALISSE [Suspect]
     Active Substance: FOSTAMATINIB
     Indication: Immune thrombocytopenia
     Dosage: 100 MG, BID
     Route: 048
     Dates: start: 20210529

REACTIONS (15)
  - Heavy menstrual bleeding [Recovered/Resolved]
  - Stress [Unknown]
  - Peripheral swelling [Unknown]
  - Platelet count [Unknown]
  - COVID-19 [Unknown]
  - Ill-defined disorder [Unknown]
  - Headache [Unknown]
  - Hypophagia [Unknown]
  - Weight decreased [Unknown]
  - Raynaud^s phenomenon [Unknown]
  - Fear [Unknown]
  - Depressed mood [Unknown]
  - Product dose omission issue [Unknown]
  - Fatigue [Unknown]
  - Nausea [Unknown]

NARRATIVE: CASE EVENT DATE: 20210101
